FAERS Safety Report 17504649 (Version 3)
Quarter: 2020Q4

REPORT INFORMATION
  Report Type: Spontaneous
  Country: US (occurrence: US)
  Receive Date: 20200305
  Receipt Date: 20201223
  Transmission Date: 20210113
  Serious: No
  Sender: FDA-Public Use
  Company Number: US-SA-2020SA054616

PATIENT

DRUGS (2)
  1. TOUJEO [Suspect]
     Active Substance: INSULIN GLARGINE
     Dosage: 32 IU, QD
  2. TOUJEO [Suspect]
     Active Substance: INSULIN GLARGINE
     Dosage: 90 IU, QD
     Route: 065

REACTIONS (2)
  - Blood glucose abnormal [Unknown]
  - Visual impairment [Unknown]
